FAERS Safety Report 4855278-7 (Version None)
Quarter: 2005Q4

REPORT INFORMATION
  Report Type: 
  Country: None (occurrence: None)
  Receive Date: 20051215
  Receipt Date: 20051205
  Transmission Date: 20060501
  Serious: Yes (Disabling)
  Sender: FDA-Public Use
  Company Number: FR-MERCK-0512FRA00014

PATIENT
  Age: 59 Year
  Sex: Female

DRUGS (1)
  1. NOROXIN [Suspect]
     Indication: URINARY TRACT INFECTION
     Route: 048
     Dates: start: 20050427, end: 20050502

REACTIONS (3)
  - RASH [None]
  - SHOULDER PAIN [None]
  - TENDONITIS [None]
